FAERS Safety Report 5482062-6 (Version None)
Quarter: 2007Q4

REPORT INFORMATION
  Report Type: 
  Country: None (occurrence: None)
  Receive Date: 20071005
  Receipt Date: 20070921
  Transmission Date: 20080405
  Serious: Yes (Disabling)
  Sender: FDA-Public Use
  Company Number: 161876ISR

PATIENT
  Age: 67 Year
  Sex: Female

DRUGS (2)
  1. SIMVASTATIN [Suspect]
     Indication: LIPIDS INCREASED
     Dosage: 40 MG  ORAL, 50 MG ORAL
     Route: 048
     Dates: start: 20070403, end: 20070420
  2. SIMVASTATIN [Suspect]
     Indication: LIPIDS INCREASED
     Dosage: 40 MG  ORAL, 50 MG ORAL
     Route: 048
     Dates: start: 20070422, end: 20070423

REACTIONS (4)
  - EMOTIONAL DISTRESS [None]
  - FALL [None]
  - HEADACHE [None]
  - SYNCOPE [None]
